FAERS Safety Report 7513605-6 (Version None)
Quarter: 2011Q2

REPORT INFORMATION
  Report Type: 
  Country: None (occurrence: None)
  Receive Date: 20110520
  Receipt Date: 20110510
  Transmission Date: 20111010
  Serious: Yes (Other)
  Sender: FDA-Public Use
  Company Number: 2011BN000040

PATIENT
  Age: 25 Month

DRUGS (6)
  1. ETOPOSIDE [Concomitant]
  2. VINCRISTINE [Concomitant]
  3. HERPAIN [Concomitant]
  4. CARBOPLATIN [Concomitant]
  5. MELPHALAN HYDROCHLORIDE [Suspect]
     Indication: RETINOBLASTOMA BILATERAL
     Dosage: 2 MG; ; IART; 7.5 MG; ;IART
  6. CYCLOSPORINE [Concomitant]

REACTIONS (1)
  - VITREOUS HAEMORRHAGE [None]
